FAERS Safety Report 7883956-4 (Version None)
Quarter: 2011Q4

REPORT INFORMATION
  Report Type: 
  Country: None (occurrence: None)
  Receive Date: 20111102
  Receipt Date: 20111019
  Transmission Date: 20120403
  Serious: Yes (Other)
  Sender: FDA-Public Use
  Company Number: JP-SANOFI-AVENTIS-2011SA069765

PATIENT
  Age: 78 Year
  Sex: Male

DRUGS (4)
  1. PIRARUBICIN [Suspect]
     Indication: GINGIVAL CANCER
     Route: 013
     Dates: start: 20100101, end: 20100101
  2. CISPLATIN [Suspect]
     Indication: GINGIVAL CANCER
     Route: 013
     Dates: start: 20100101, end: 20100101
  3. FLUOROURACIL [Suspect]
     Indication: GINGIVAL CANCER
     Route: 013
     Dates: start: 20100101, end: 20100101
  4. TAXOTERE [Suspect]
     Indication: GINGIVAL CANCER
     Route: 013
     Dates: start: 20100101, end: 20100101

REACTIONS (7)
  - DECREASED APPETITE [None]
  - INAPPROPRIATE ANTIDIURETIC HORMONE SECRETION [None]
  - VOMITING [None]
  - SUPERIOR MESENTERIC ARTERY SYNDROME [None]
  - PYREXIA [None]
  - NAUSEA [None]
  - NEUTROPENIA [None]
